FAERS Safety Report 25985642 (Version 1)
Quarter: 2025Q4

REPORT INFORMATION
  Report Type: Spontaneous
  Country: EU (occurrence: EU)
  Receive Date: 20251101
  Receipt Date: 20251101
  Transmission Date: 20260117
  Serious: Yes (Other)
  Sender: TEVA
  Company Number: None

PATIENT
  Age: 27 Year
  Sex: Male
  Weight: 87 kg

DRUGS (1)
  1. VENLAFAXINE [Suspect]
     Active Substance: VENLAFAXINE HYDROCHLORIDE
     Indication: Depression
     Dosage: 1 TABLET ONCE A DAY, FOR 23 YEARS.; CAPSULE MGA / BRAND NAME NOT SPECIFIED
     Route: 048
     Dates: start: 20020701

REACTIONS (5)
  - Dry mouth [Not Recovered/Not Resolved]
  - Poor dental condition [Not Recovered/Not Resolved]
  - Dizziness [Not Recovered/Not Resolved]
  - Physical deconditioning [Not Recovered/Not Resolved]
  - Withdrawal syndrome [Not Recovered/Not Resolved]
